FAERS Safety Report 8557959-0 (Version None)
Quarter: 2012Q3

REPORT INFORMATION
  Report Type: 
  Country: None (occurrence: None)
  Receive Date: 20120801
  Receipt Date: 20120717
  Transmission Date: 20120928
  Serious: No
  Sender: FDA-Public Use
  Company Number: US-ASTRAZENECA-2012SE50538

PATIENT
  Age: 58 Year
  Sex: Male

DRUGS (10)
  1. NEXIUM [Suspect]
     Route: 048
  2. NEXIUM [Suspect]
     Route: 048
  3. NEXIUM [Suspect]
     Dosage: TAKE AN EXTRA DOSE SOMETIMES
     Route: 048
  4. NEXIUM [Suspect]
     Indication: OESOPHAGEAL ULCER
     Route: 048
  5. NEXIUM [Suspect]
     Route: 048
  6. NEXIUM [Suspect]
     Indication: GASTROOESOPHAGEAL REFLUX DISEASE
     Route: 048
  7. GEODON [Concomitant]
     Indication: PSYCHOTIC DISORDER
  8. NEXIUM [Suspect]
     Dosage: TAKE AN EXTRA DOSE SOMETIMES
     Route: 048
  9. NEXIUM [Suspect]
     Indication: BARRETT'S OESOPHAGUS
     Route: 048
  10. NEXIUM [Suspect]
     Dosage: TAKE AN EXTRA DOSE SOMETIMES
     Route: 048

REACTIONS (5)
  - OFF LABEL USE [None]
  - DRUG DOSE OMISSION [None]
  - DRUG EFFECT DECREASED [None]
  - OESOPHAGEAL PAIN [None]
  - INTENTIONAL DRUG MISUSE [None]
